FAERS Safety Report 25284926 (Version 2)
Quarter: 2025Q2

REPORT INFORMATION
  Report Type: Report from Study
  Country: CN (occurrence: CN)
  Receive Date: 20250508
  Receipt Date: 20250522
  Transmission Date: 20250716
  Serious: No
  Sender: MERCK SHARP & DOHME LLC
  Company Number: CN-009507513-2282101

PATIENT
  Age: 87 Year
  Sex: Female
  Weight: 65 kg

DRUGS (2)
  1. LAGEVRIO [Suspect]
     Active Substance: MOLNUPIRAVIR
     Indication: COVID-19
     Route: 048
     Dates: start: 20240729, end: 20240803
  2. LAGEVRIO [Suspect]
     Active Substance: MOLNUPIRAVIR
     Indication: COVID-19
     Route: 048
     Dates: start: 20240804

REACTIONS (2)
  - SARS-CoV-2 test positive [Unknown]
  - Product prescribing issue [Unknown]

NARRATIVE: CASE EVENT DATE: 20240801
